FAERS Safety Report 7365794-4 (Version None)
Quarter: 2011Q1

REPORT INFORMATION
  Report Type: 
  Country: None (occurrence: None)
  Receive Date: 20110322
  Receipt Date: 20110308
  Transmission Date: 20110831
  Serious: Yes (Hospitalization)
  Sender: FDA-Public Use
  Company Number: CA-JNJFOC-20110107088

PATIENT
  Sex: Female

DRUGS (3)
  1. BUSCOPAN [Concomitant]
  2. REMICADE [Suspect]
     Indication: CROHN'S DISEASE
     Route: 042
  3. FLOMAX [Concomitant]

REACTIONS (2)
  - INFLUENZA [None]
  - NEPHROLITHIASIS [None]
